FAERS Safety Report 7542616-X (Version None)
Quarter: 2011Q2

REPORT INFORMATION
  Report Type: 
  Country: None (occurrence: None)
  Receive Date: 20110613
  Receipt Date: 20110603
  Transmission Date: 20111010
  Serious: Yes (Other)
  Sender: FDA-Public Use
  Company Number: PHHY2011FR50185

PATIENT
  Age: 69 Year
  Sex: Female
  Weight: 57 kg

DRUGS (4)
  1. HYDROXYZINE [Suspect]
     Dosage: 50 MG, UNK
  2. SUFENTANIL CITRATE [Suspect]
     Indication: INDUCTION OF ANAESTHESIA
     Dosage: 15 UG, CUMULATIVE DOSE
  3. PROPOFOL [Suspect]
     Dosage: 130 MG, UNK
  4. ATRACURIUM BESYLATE [Suspect]
     Dosage: 25 MG, UNK
     Route: 042

REACTIONS (5)
  - TYPE I HYPERSENSITIVITY [None]
  - HYPOTENSION [None]
  - GENERALISED ERYTHEMA [None]
  - TACHYCARDIA [None]
  - MASTOCYTOSIS [None]
